FAERS Safety Report 4532116-3 (Version None)
Quarter: 2004Q4

REPORT INFORMATION
  Report Type: 
  Country: None (occurrence: None)
  Receive Date: 20041217
  Receipt Date: 20041206
  Transmission Date: 20050328
  Serious: Yes (Life-Threatening)
  Sender: FDA-Public Use
  Company Number: 2004AP06107

PATIENT
  Age: 52 Year
  Sex: Male

DRUGS (3)
  1. TENORMIN [Suspect]
     Indication: ATRIAL FIBRILLATION
     Dosage: 50 MG DAILY PO
     Route: 048
     Dates: start: 20040116, end: 20040116
  2. SUNRYTHM [Suspect]
     Indication: ATRIAL FIBRILLATION
     Dates: start: 20040108
  3. DIGOSIN [Suspect]
     Indication: ATRIAL FIBRILLATION
     Dates: start: 20040108

REACTIONS (4)
  - DRUG INTERACTION [None]
  - ELECTROCARDIOGRAM ST SEGMENT ELEVATION [None]
  - LOSS OF CONSCIOUSNESS [None]
  - VENTRICULAR FIBRILLATION [None]
